FAERS Safety Report 18619648 (Version 1)
Quarter: 2020Q4

REPORT INFORMATION
  Report Type: Spontaneous
  Country: BR (occurrence: BR)
  Receive Date: 20201215
  Receipt Date: 20201215
  Transmission Date: 20210114
  Serious: Yes (Other)
  Sender: FDA-Public Use
  Company Number: BR-PFIZER INC-2020275216

PATIENT
  Age: 84 Year
  Sex: Male

DRUGS (1)
  1. XALATAN [Suspect]
     Active Substance: LATANOPROST
     Indication: GLAUCOMA
     Dosage: 2 DF, DAILY (1 DROP IN EACH EYE AT NIGHT)
     Dates: start: 1990

REACTIONS (4)
  - Eyelids pruritus [Unknown]
  - Eye irritation [Unknown]
  - Eye pruritus [Unknown]
  - Cataract [Unknown]

NARRATIVE: CASE EVENT DATE: 202005
